FAERS Safety Report 15693888 (Version 1)
Quarter: 2018Q4

REPORT INFORMATION
  Report Type: Spontaneous
  Country: US (occurrence: US)
  Receive Date: 20181206
  Receipt Date: 20181206
  Transmission Date: 20190205
  Serious: Yes (Other)
  Sender: FDA-Public Use
  Company Number: US-GLAXOSMITHKLINE-US2018213853

PATIENT
  Age: 73 Year
  Sex: Male

DRUGS (2)
  1. BREO ELLIPTA [Suspect]
     Active Substance: FLUTICASONE FUROATE\VILANTEROL TRIFENATATE
     Dosage: 1 PUFF(S), 100/25 UG
     Dates: start: 201811
  2. BREO ELLIPTA [Suspect]
     Active Substance: FLUTICASONE FUROATE\VILANTEROL TRIFENATATE
     Indication: ASTHMA
     Dosage: 1 PUFF(S), 200/25 UG
     Dates: start: 2018, end: 201811

REACTIONS (9)
  - Cough [Unknown]
  - Paraesthesia [Unknown]
  - Nocturia [Unknown]
  - Respiratory tract infection [Unknown]
  - Tendonitis [Unknown]
  - Oropharyngeal pain [Unknown]
  - Pain [Unknown]
  - Musculoskeletal discomfort [Unknown]
  - Sputum discoloured [Unknown]

NARRATIVE: CASE EVENT DATE: 2018
